FAERS Safety Report 6111834-X (Version None)
Quarter: 2009Q1

REPORT INFORMATION
  Report Type: 
  Country: None (occurrence: None)
  Receive Date: 20090311
  Receipt Date: 20090227
  Transmission Date: 20090719
  Serious: Yes (Life-Threatening, Other)
  Sender: FDA-Public Use
  Company Number: CA-PFIZER INC-2007095259

PATIENT

DRUGS (27)
  1. VORICONAZOLE [Suspect]
     Indication: PROPHYLAXIS
     Dosage: 645 MG, 2X/DAY
     Route: 042
     Dates: start: 20071019, end: 20071020
  2. VORICONAZOLE [Suspect]
     Dosage: 436 MG, 2X/DAY
     Route: 042
     Dates: start: 20071020, end: 20071021
  3. VORICONAZOLE [Suspect]
     Dosage: 200 MG, 2X/DAY
     Route: 048
     Dates: start: 20071021, end: 20071031
  4. VORICONAZOLE [Suspect]
     Dosage: 416 MG, 2X/DAY
     Route: 042
     Dates: start: 20071101, end: 20071103
  5. VORICONAZOLE [Suspect]
     Dosage: 200 MG, 2X/DAY
     Route: 042
     Dates: start: 20071104, end: 20071105
  6. VORICONAZOLE [Suspect]
     Dosage: 200 MG, 2X/DAY
     Route: 048
     Dates: start: 20071116
  7. CIPROFLOXACIN [Concomitant]
     Dates: start: 20071012
  8. TACROLIMUS [Concomitant]
     Route: 048
     Dates: start: 20071016
  9. RABEPRAZOLE SODIUM [Concomitant]
     Route: 048
     Dates: start: 20071025, end: 20071031
  10. ACYCLOVIR [Concomitant]
     Dates: start: 20071012
  11. RANITIDINE [Concomitant]
     Route: 048
     Dates: start: 20071015, end: 20071025
  12. DEXAMETHASONE [Concomitant]
     Route: 048
     Dates: start: 20071022, end: 20071030
  13. PROCHLORPERAZINE [Concomitant]
     Route: 042
     Dates: start: 20071020, end: 20071028
  14. CODEINE [Concomitant]
     Route: 048
     Dates: start: 20071018, end: 20071026
  15. TRANEXAMIC ACID [Concomitant]
     Route: 048
     Dates: start: 20071021, end: 20071024
  16. LASIX [Concomitant]
     Route: 042
     Dates: start: 20071025, end: 20071025
  17. TRANEXAMIC ACID [Concomitant]
     Route: 042
     Dates: start: 20071028
  18. METHOTREXATE [Concomitant]
     Route: 042
     Dates: start: 20071020, end: 20071030
  19. GRANISETRON [Concomitant]
     Route: 042
     Dates: start: 20071022, end: 20071103
  20. VANCOMYCIN [Concomitant]
     Route: 042
     Dates: start: 20071024, end: 20071106
  21. GRAVOL TAB [Concomitant]
     Route: 042
     Dates: start: 20071020, end: 20071104
  22. PIPERACILLIN AND TAZOBACTAM [Concomitant]
     Route: 042
     Dates: start: 20071023
  23. MORPHINE [Concomitant]
     Route: 042
     Dates: start: 20071021, end: 20071022
  24. ATIVAN [Concomitant]
     Route: 048
     Dates: start: 20071013
  25. MAGNESIUM SULFATE [Concomitant]
     Route: 042
     Dates: start: 20071025, end: 20071029
  26. TEMAZEPAM [Concomitant]
     Route: 048
     Dates: start: 20071026, end: 20071027
  27. HYDROMORPHONE HCL [Concomitant]
     Route: 042
     Dates: start: 20071025

REACTIONS (3)
  - HYPERBILIRUBINAEMIA [None]
  - PNEUMONIA [None]
  - RESPIRATORY FAILURE [None]
